FAERS Safety Report 5345072-5 (Version None)
Quarter: 2007Q2

REPORT INFORMATION
  Report Type: 
  Country: None (occurrence: None)
  Receive Date: 20070601
  Receipt Date: 20070514
  Transmission Date: 20071010
  Serious: Yes (Hospitalization)
  Sender: FDA-Public Use
  Company Number: ENTC2005-0297

PATIENT
  Age: 1 Day
  Sex: Female

DRUGS (3)
  1. STALEVO 100 [Suspect]
     Dosage: TRANSPLACENTAL; FROM TESTATIONAL WEEK 12
     Route: 064
  2. MADOPARK QUICK MITE [Suspect]
     Dosage: TRANSPLACENTAL; FROM GESTATIONAL WEEK 12
     Route: 064
  3. PRAVIDEL [Suspect]

REACTIONS (6)
  - C-REACTIVE PROTEIN INCREASED [None]
  - CONGENITAL PNEUMONIA [None]
  - CONVULSION NEONATAL [None]
  - DRUG EXPOSURE DURING PREGNANCY [None]
  - DRUG WITHDRAWAL SYNDROME [None]
  - MUSCLE SPASMS [None]
